FAERS Safety Report 6579172-9 (Version None)
Quarter: 2010Q1

REPORT INFORMATION
  Report Type: 
  Country: None (occurrence: None)
  Receive Date: 20100212
  Receipt Date: 20100201
  Transmission Date: 20100710
  Serious: Yes (Hospitalization, Other)
  Sender: FDA-Public Use
  Company Number: PHHY2009JP33662

PATIENT
  Sex: Male

DRUGS (16)
  1. ICL670A ICL+DISTAB [Suspect]
     Indication: MYELODYSPLASTIC SYNDROME
     Dosage: 100 MG/DAY
     Route: 048
     Dates: start: 20081015
  2. ICL670A ICL+DISTAB [Suspect]
     Indication: IRON OVERLOAD
     Dosage: 500 MG/DAY
     Route: 048
     Dates: start: 20081204, end: 20090319
  3. ICL670A ICL+DISTAB [Suspect]
     Dosage: 500 MG/DAY
     Dates: start: 20090501
  4. PRIMOBOLAN [Concomitant]
     Indication: MYELODYSPLASTIC SYNDROME
     Dosage: 20 MG, UNK
     Route: 048
     Dates: start: 20090501, end: 20090806
  5. BIFIDOBACTERIUM [Concomitant]
     Indication: MYELODYSPLASTIC SYNDROME
     Dosage: 3 G, UNK
     Route: 048
     Dates: start: 20090501, end: 20090806
  6. FLOMOX [Concomitant]
     Dosage: 300 MG, UNK
     Route: 048
     Dates: start: 20090624, end: 20090630
  7. CRAVIT [Concomitant]
  8. LOXONIN [Concomitant]
     Dosage: 60 MG, UNK
     Route: 048
     Dates: start: 20090603, end: 20090806
  9. CYTOTEC [Concomitant]
     Dosage: 200 MG, UNK
     Route: 048
     Dates: start: 20090603, end: 20090806
  10. DESFERAL [Concomitant]
  11. NEO-MINOPHAGEN C [Concomitant]
  12. MS REISHIPPU [Concomitant]
     Dosage: UNK
     Dates: start: 20090702, end: 20090806
  13. WARFARIN SODIUM [Concomitant]
     Dosage: 3 MG, UNK
     Route: 048
     Dates: start: 20090703, end: 20090806
  14. ROPION [Concomitant]
     Dosage: 50 MG, UNK
     Route: 017
     Dates: start: 20090702, end: 20090706
  15. MEROPEN [Concomitant]
     Dosage: 1 G, UNK
     Route: 042
     Dates: start: 20090702, end: 20090702
  16. SULBACTAM SODIUM [Concomitant]
     Dosage: 2 G, UNK
     Route: 042
     Dates: start: 20090703, end: 20090706

REACTIONS (7)
  - DECREASED APPETITE [None]
  - DEEP VEIN THROMBOSIS [None]
  - LIVER DISORDER [None]
  - OEDEMA PERIPHERAL [None]
  - PANCYTOPENIA [None]
  - RENAL IMPAIRMENT [None]
  - UPPER RESPIRATORY TRACT INFECTION [None]
